FAERS Safety Report 21800502 (Version 4)
Quarter: 2023Q1

REPORT INFORMATION
  Report Type: Report from Study
  Country: US (occurrence: US)
  Receive Date: 20221230
  Receipt Date: 20230310
  Transmission Date: 20230417
  Serious: Yes (Hospitalization, Disabling, Other)
  Sender: FDA-Public Use
  Company Number: US-ABBVIE-4251462

PATIENT
  Sex: Female
  Weight: 97 kg

DRUGS (6)
  1. HUMIRA [Suspect]
     Active Substance: ADALIMUMAB
     Indication: Autoimmune thyroiditis
     Dosage: CITRATE FREE 40 MG
     Route: 058
     Dates: start: 20161228
  2. HUMIRA [Suspect]
     Active Substance: ADALIMUMAB
     Indication: Sjogren^s syndrome
     Dosage: CITRATE FREE 40 MG
     Route: 058
     Dates: start: 20221212
  3. HUMIRA [Suspect]
     Active Substance: ADALIMUMAB
     Indication: Autoimmune thyroiditis
     Dosage: CITRATE FREE
     Route: 058
     Dates: start: 20230306
  4. HUMIRA [Suspect]
     Active Substance: ADALIMUMAB
     Indication: Rheumatoid arthritis
  5. HUMIRA [Suspect]
     Active Substance: ADALIMUMAB
     Indication: Rheumatoid arthritis
  6. HUMIRA [Suspect]
     Active Substance: ADALIMUMAB
     Indication: Sjogren^s syndrome

REACTIONS (25)
  - Vision blurred [Recovered/Resolved]
  - Ocular hyperaemia [Recovered/Resolved]
  - Insomnia [Unknown]
  - Muscle spasms [Not Recovered/Not Resolved]
  - Hip arthroplasty [Unknown]
  - Insomnia [Not Recovered/Not Resolved]
  - Stress cardiomyopathy [Recovering/Resolving]
  - Back pain [Not Recovered/Not Resolved]
  - Pain in extremity [Unknown]
  - Arthralgia [Not Recovered/Not Resolved]
  - Cataract [Unknown]
  - Myocardial infarction [Recovering/Resolving]
  - Eye swelling [Recovered/Resolved]
  - Bundle branch block left [Recovering/Resolving]
  - Asthenopia [Recovered/Resolved]
  - Musculoskeletal disorder [Not Recovered/Not Resolved]
  - Feeling abnormal [Unknown]
  - Fatigue [Not Recovered/Not Resolved]
  - Inflammatory marker increased [Not Recovered/Not Resolved]
  - Visual impairment [Not Recovered/Not Resolved]
  - Bipolar disorder [Not Recovered/Not Resolved]
  - Walking aid user [Unknown]
  - Restless legs syndrome [Not Recovered/Not Resolved]
  - Stress cardiomyopathy [Recovering/Resolving]
  - Inflammation [Unknown]

NARRATIVE: CASE EVENT DATE: 20180101
